FAERS Safety Report 18507643 (Version 1)
Quarter: 2020Q4

REPORT INFORMATION
  Report Type: Report from Study
  Country: US (occurrence: US)
  Receive Date: 20201116
  Receipt Date: 20201116
  Transmission Date: 20210114
  Serious: Yes (Disabling)
  Sender: FDA-Public Use
  Company Number: US-BAYER-2017-155720

PATIENT

DRUGS (4)
  1. AVELOX [Suspect]
     Active Substance: MOXIFLOXACIN HYDROCHLORIDE
     Dosage: UNK
  2. CIPRO [Suspect]
     Active Substance: CIPROFLOXACIN HYDROCHLORIDE
     Dosage: UNK
  3. LEVAQUIN [Suspect]
     Active Substance: LEVOFLOXACIN
     Dosage: UNK
  4. FLOXIN [Suspect]
     Active Substance: OFLOXACIN
     Dosage: UNK

REACTIONS (5)
  - Disability [Not Recovered/Not Resolved]
  - Adverse drug reaction [None]
  - Quality of life decreased [None]
  - Pain [None]
  - Toxicity to various agents [None]

NARRATIVE: CASE EVENT DATE: 2016
